FAERS Safety Report 19624624 (Version 18)
Quarter: 2021Q4

REPORT INFORMATION
  Report Type: Report from Study
  Country: GB (occurrence: GB)
  Receive Date: 20210728
  Receipt Date: 20211129
  Transmission Date: 20220303
  Serious: Yes (Death, Hospitalization, Other)
  Sender: FDA-Public Use
  Company Number: None

PATIENT
  Age: 55 Year
  Sex: Female

DRUGS (100)
  1. CAPECITABINE [Suspect]
     Active Substance: CAPECITABINE
     Indication: Breast cancer
     Dosage: 3 MILLIGRAM
     Route: 048
     Dates: start: 20200525, end: 20200525
  2. CAPECITABINE [Suspect]
     Active Substance: CAPECITABINE
     Indication: Breast cancer metastatic
     Dosage: 1300 MILLIGRAM
     Route: 048
     Dates: start: 20201020
  3. CAPECITABINE [Suspect]
     Active Substance: CAPECITABINE
     Dosage: UNK
  4. CAPECITABINE [Suspect]
     Active Substance: CAPECITABINE
     Dosage: 3 MILLIGRAM
     Route: 048
     Dates: start: 20201020
  5. TRASTUZUMAB [Suspect]
     Active Substance: TRASTUZUMAB
     Indication: Breast cancer metastatic
     Dosage: 240 MILLIGRAM, Q3W
     Route: 042
     Dates: start: 20190427, end: 20190606
  6. TRASTUZUMAB [Suspect]
     Active Substance: TRASTUZUMAB
     Indication: Breast cancer
     Dosage: 160 MILLIGRAM, Q3W
     Route: 042
     Dates: start: 20190829, end: 20200326
  7. TRASTUZUMAB [Suspect]
     Active Substance: TRASTUZUMAB
     Dosage: 200 MILLIGRAM, Q3W
     Route: 042
     Dates: start: 20190627, end: 20190718
  8. TRASTUZUMAB [Suspect]
     Active Substance: TRASTUZUMAB
     Dosage: 400 MILLIGRAM
     Route: 042
     Dates: start: 20170614, end: 20180425
  9. TRASTUZUMAB [Suspect]
     Active Substance: TRASTUZUMAB
     Dosage: 525 MILLIGRAM
     Route: 042
     Dates: start: 20170524, end: 20170524
  10. TRASTUZUMAB [Suspect]
     Active Substance: TRASTUZUMAB
     Dosage: 378 MILLIGRAM
     Route: 042
     Dates: start: 20180516, end: 20190327
  11. PACLITAXEL [Suspect]
     Active Substance: PACLITAXEL
     Indication: Breast cancer
     Dosage: 375 MILLIGRAM, Q3W
     Route: 042
     Dates: start: 20170614, end: 20170726
  12. PACLITAXEL [Suspect]
     Active Substance: PACLITAXEL
     Indication: Breast cancer metastatic
     Dosage: 450 MILLIGRAM, Q3W
     Route: 042
     Dates: start: 20170614, end: 20170614
  13. PACLITAXEL [Suspect]
     Active Substance: PACLITAXEL
     Dosage: 300 MILLIGRAM, Q3W
     Route: 042
     Dates: start: 20170816, end: 20170906
  14. PACLITAXEL [Suspect]
     Active Substance: PACLITAXEL
     Dosage: 375 MILLIGRAM, Q3W
     Route: 042
     Dates: start: 20170816, end: 20170906
  15. PACLITAXEL [Suspect]
     Active Substance: PACLITAXEL
     Dosage: 375 MILLIGRAM, Q3W
     Route: 042
     Dates: start: 20170614, end: 20170614
  16. PACLITAXEL [Suspect]
     Active Substance: PACLITAXEL
     Dosage: 375 MILLIGRAM, Q3W
     Route: 042
     Dates: start: 20170705, end: 20170726
  17. DOCETAXEL [Suspect]
     Active Substance: DOCETAXEL
     Indication: Breast cancer metastatic
     Dosage: 130 MILLIGRAM, Q3W
     Route: 042
     Dates: start: 20170525, end: 20170525
  18. DOCETAXEL [Suspect]
     Active Substance: DOCETAXEL
     Indication: Breast cancer
     Dosage: 130 MILLIGRAM
  19. NERATINIB [Suspect]
     Active Substance: NERATINIB
     Indication: Breast cancer
     Dosage: 240 MILLIGRAM, QD
     Route: 048
     Dates: start: 20200919, end: 20201104
  20. TRASTUZUMAB [Suspect]
     Active Substance: TRASTUZUMAB
     Indication: Breast cancer
     Dosage: 378 MILLIGRAM, Q3W
     Route: 041
     Dates: start: 20180516, end: 20190327
  21. TRASTUZUMAB [Suspect]
     Active Substance: TRASTUZUMAB
     Indication: Breast cancer metastatic
     Dosage: 400 MILLIGRAM, Q3W
     Route: 041
     Dates: start: 20170614, end: 20180425
  22. TRASTUZUMAB [Suspect]
     Active Substance: TRASTUZUMAB
     Dosage: 525 MILLIGRAM, Q3W
     Route: 041
     Dates: start: 20170524, end: 20170524
  23. TRASTUZUMAB [Suspect]
     Active Substance: TRASTUZUMAB
     Dosage: 400 MILLIGRAM, Q3W
     Route: 042
     Dates: start: 20170614, end: 20170614
  24. ERIBULIN MESYLATE [Suspect]
     Active Substance: ERIBULIN MESYLATE
     Indication: Breast cancer
     Dosage: 1.85 MILLIGRAM
     Route: 042
     Dates: start: 20200611, end: 20200820
  25. ERIBULIN MESYLATE [Suspect]
     Active Substance: ERIBULIN MESYLATE
     Indication: Breast cancer metastatic
  26. PERTUZUMAB [Suspect]
     Active Substance: PERTUZUMAB
     Indication: Breast cancer metastatic
     Dosage: 840 MILLIGRAM, Q3W
     Route: 042
     Dates: start: 20170524, end: 20170524
  27. PERTUZUMAB [Suspect]
     Active Substance: PERTUZUMAB
     Indication: Breast cancer
     Dosage: 420 MILLIGRAM, Q3W
     Route: 042
     Dates: start: 20170614, end: 20190327
  28. PERTUZUMAB [Suspect]
     Active Substance: PERTUZUMAB
     Dosage: 300 MILLIGRAM, Q3W
     Route: 042
     Dates: start: 20170816, end: 20170906
  29. PERTUZUMAB [Suspect]
     Active Substance: PERTUZUMAB
     Dosage: 375 MILLIGRAM, Q3W
     Route: 042
     Dates: start: 20170705, end: 20170726
  30. XELODA [Suspect]
     Active Substance: CAPECITABINE
     Indication: Product used for unknown indication
     Dosage: 1300 MILLIGRAM
     Route: 048
     Dates: start: 20201020
  31. FUSIDIC ACID [Concomitant]
     Active Substance: FUSIDIC ACID
     Indication: Rhinitis
     Dosage: UNK
     Route: 065
     Dates: start: 201905, end: 201905
  32. FUSIDIC ACID [Concomitant]
     Active Substance: FUSIDIC ACID
     Dosage: UNK
     Route: 065
  33. LOPERAMIDE [Concomitant]
     Active Substance: LOPERAMIDE
     Indication: Product used for unknown indication
     Dosage: 2 MILLIGRAM, AS NECESSARY
     Route: 048
     Dates: start: 20170613, end: 20201113
  34. LOPERAMIDE [Concomitant]
     Active Substance: LOPERAMIDE
     Dosage: UNK
  35. CETIRIZINE [Concomitant]
     Active Substance: CETIRIZINE HYDROCHLORIDE
     Indication: Urticaria papular
     Dosage: 1 DOSAGE FORM, QD
     Route: 048
     Dates: start: 20190313, end: 2019
  36. CETIRIZINE [Concomitant]
     Active Substance: CETIRIZINE HYDROCHLORIDE
     Dosage: UNK
  37. LANSOPRAZOLE [Concomitant]
     Active Substance: LANSOPRAZOLE
     Indication: Gastritis
     Dosage: 30 MILLIGRAM, QD
     Route: 048
     Dates: start: 20190730, end: 202010
  38. LANSOPRAZOLE [Concomitant]
     Active Substance: LANSOPRAZOLE
     Dosage: UNK
  39. DOMPERIDONE [Concomitant]
     Active Substance: DOMPERIDONE
     Indication: Product used for unknown indication
     Dosage: 10 MILLIGRAM, TID
     Route: 048
     Dates: start: 20170523, end: 20170526
  40. DOMPERIDONE [Concomitant]
     Active Substance: DOMPERIDONE
     Dosage: UNK
  41. CIPROFLOXACINE                     /00697201/ [Concomitant]
     Indication: Cholecystitis acute
     Dosage: UNK
     Route: 065
     Dates: start: 20200909, end: 20200916
  42. CIPROFLOXACINE                     /00697201/ [Concomitant]
     Indication: Abdominal pain upper
     Dosage: UNK
     Route: 065
     Dates: start: 20200707, end: 20200707
  43. TRANEXAMIC ACID [Concomitant]
     Active Substance: TRANEXAMIC ACID
     Indication: Coagulopathy
     Dosage: 1 GRAM, TID
     Route: 048
     Dates: start: 20201111, end: 20201112
  44. TRANEXAMIC ACID [Concomitant]
     Active Substance: TRANEXAMIC ACID
     Indication: Duodenal ulcer
     Dosage: UNK
     Route: 065
     Dates: start: 20190722, end: 201907
  45. TRANEXAMIC ACID [Concomitant]
     Active Substance: TRANEXAMIC ACID
     Dosage: 1 GRAM, TID
     Route: 048
     Dates: start: 20201112, end: 20201113
  46. TRANEXAMIC ACID [Concomitant]
     Active Substance: TRANEXAMIC ACID
     Dosage: 1 GRAM
     Route: 048
     Dates: start: 20201112, end: 20201113
  47. CEFUROXIME [Concomitant]
     Active Substance: CEFUROXIME
     Indication: Product contamination microbial
     Dosage: 250 MILLIGRAM, BID
     Route: 048
     Dates: start: 20200925, end: 20201019
  48. CEFUROXIME [Concomitant]
     Active Substance: CEFUROXIME
     Dosage: 250 MILLIGRAM, BID
     Route: 048
     Dates: start: 20201028
  49. CEFUROXIME [Concomitant]
     Active Substance: CEFUROXIME
     Dosage: 250 MILLIGRAM, 5D
     Route: 048
     Dates: start: 20201028
  50. CEFUROXIME [Concomitant]
     Active Substance: CEFUROXIME
     Dosage: 250 MILLIGRAM, 5D
     Route: 048
     Dates: start: 20200925, end: 20201019
  51. CEFTRIAXONE [Concomitant]
     Active Substance: CEFTRIAXONE
     Indication: Product contamination microbial
     Dosage: 250 MILLIGRAM, BID
     Route: 048
     Dates: start: 20200928, end: 20201012
  52. ACETAMINOPHEN [Concomitant]
     Active Substance: ACETAMINOPHEN
     Dosage: 1 INTERNATIONAL UNIT, PRN
     Route: 048
     Dates: start: 20170525, end: 20210205
  53. ACETAMINOPHEN [Concomitant]
     Active Substance: ACETAMINOPHEN
     Dosage: UNK
  54. ACETAMINOPHEN [Concomitant]
     Active Substance: ACETAMINOPHEN
     Dosage: 1 IU
     Route: 048
     Dates: start: 20170525
  55. CALCIUM\CHOLECALCIFEROL [Concomitant]
     Active Substance: CALCIUM\CHOLECALCIFEROL
     Indication: Product used for unknown indication
     Dosage: 1 DOSAGE FORM, QD
     Route: 048
     Dates: start: 20170525, end: 20210205
  56. CALCIUM\CHOLECALCIFEROL [Concomitant]
     Active Substance: CALCIUM\CHOLECALCIFEROL
     Dosage: UNK
  57. CALCIUM\CHOLECALCIFEROL [Concomitant]
     Active Substance: CALCIUM\CHOLECALCIFEROL
     Dosage: 1 DOSAGE FORM, TID
     Route: 048
     Dates: start: 20170525, end: 20210205
  58. CALCIUM\CHOLECALCIFEROL [Concomitant]
     Active Substance: CALCIUM\CHOLECALCIFEROL
     Dosage: 1 DOSAGE FORM
     Route: 048
     Dates: start: 20170525
  59. CHLORPHENIRAMINE MALEATE [Concomitant]
     Active Substance: CHLORPHENIRAMINE MALEATE
     Indication: Product used for unknown indication
     Dosage: 4 MILLIGRAM, 0.25 DAY
     Route: 048
     Dates: start: 20170526, end: 20170530
  60. CHLORPHENIRAMINE MALEATE [Concomitant]
     Active Substance: CHLORPHENIRAMINE MALEATE
     Dosage: UNK
  61. CHLORPHENIRAMINE MALEATE [Concomitant]
     Active Substance: CHLORPHENIRAMINE MALEATE
     Dosage: 4 MILLIGRAM
     Route: 048
     Dates: start: 20170526, end: 20170530
  62. VANCOMYCIN [Concomitant]
     Active Substance: VANCOMYCIN
     Indication: Clostridium difficile infection
     Dosage: CAPSULE PO (ORAL) QID (FOUR TIMES A DAY)
     Route: 048
     Dates: end: 20201113
  63. VANCOMYCIN [Concomitant]
     Active Substance: VANCOMYCIN
     Dosage: 500 MILLIGRAM, 0.25 DAY
     Route: 048
     Dates: start: 20201104, end: 20201113
  64. VANCOMYCIN [Concomitant]
     Active Substance: VANCOMYCIN
     Dosage: 125 MILLIGRAM, 0.25 DAY
     Route: 048
     Dates: start: 20201030, end: 20201104
  65. VANCOMYCIN [Concomitant]
     Active Substance: VANCOMYCIN
     Dosage: 125 MILLIGRAM, QID
     Route: 048
  66. VANCOMYCIN [Concomitant]
     Active Substance: VANCOMYCIN
     Dosage: 125 MILLIGRAM
     Route: 048
     Dates: start: 20201030, end: 20201104
  67. VANCOMYCIN [Concomitant]
     Active Substance: VANCOMYCIN
     Dosage: 500 MILLIGRAM
     Route: 048
     Dates: start: 20201104, end: 20201113
  68. AZTREONAM [Concomitant]
     Active Substance: AZTREONAM
     Indication: Product contamination microbial
     Dosage: UNK
     Route: 042
     Dates: start: 20201028, end: 20201104
  69. CYCLOSPORINE [Concomitant]
     Active Substance: CYCLOSPORINE
     Indication: Blepharitis
     Dosage: UNK
     Route: 047
     Dates: start: 201708, end: 2018
  70. CYCLOSPORINE [Concomitant]
     Active Substance: CYCLOSPORINE
     Dosage: UNK
  71. CARBOXYMETHYLCELLULOSE SODIUM\DEVICE\SORBINICATE [Concomitant]
     Active Substance: CARBOXYMETHYLCELLULOSE SODIUM\DEVICE\SORBINICATE
     Indication: Product used for unknown indication
     Dosage: UNK
     Route: 060
     Dates: start: 20170526, end: 2017
  72. CARBOXYMETHYLCELLULOSE SODIUM\DEVICE\SORBINICATE [Concomitant]
     Active Substance: CARBOXYMETHYLCELLULOSE SODIUM\DEVICE\SORBINICATE
     Dosage: UNK
  73. CLOBETASOL [Concomitant]
     Active Substance: CLOBETASOL
     Dosage: UNK
  74. METRONIDAZOLE                      /00012502/ [Concomitant]
     Indication: Cholecystitis acute
     Dosage: 400 MILLIGRAM, MONTHLY
     Route: 048
     Dates: start: 20201116, end: 202011
  75. METRONIDAZOLE                      /00012502/ [Concomitant]
     Indication: Duodenal ulcer
     Dosage: UNK
     Route: 042
     Dates: start: 20200630, end: 20200709
  76. METRONIDAZOLE                      /00012502/ [Concomitant]
     Dosage: UNK
     Dates: start: 20200925, end: 20200927
  77. METRONIDAZOLE                      /00012502/ [Concomitant]
     Dosage: UNK
     Dates: start: 20200909, end: 20200914
  78. CHLORHEXIDINE GLUCONATE [Concomitant]
     Active Substance: CHLORHEXIDINE GLUCONATE
     Dosage: 10 MILLILITER
     Route: 061
     Dates: start: 20170525, end: 2017
  79. AMITRIPTYLINE [Concomitant]
     Active Substance: AMITRIPTYLINE
     Indication: Depressed mood
     Dosage: 5 MILLIGRAM, QD
     Route: 048
     Dates: start: 20190827, end: 20190919
  80. TINZAPARIN [Concomitant]
     Active Substance: TINZAPARIN
     Indication: Product used for unknown indication
     Dosage: UNK
     Route: 065
  81. ZOLEDRONIC ACID [Concomitant]
     Active Substance: ZOLEDRONIC ACID
     Dosage: 4 MILLIGRAM
     Route: 042
     Dates: start: 20170525, end: 20201022
  82. SANDO K                            /00209301/ [Concomitant]
     Indication: Product used for unknown indication
     Dosage: 1 DOSAGE FORM, BID
     Route: 048
     Dates: start: 20170525, end: 20170529
  83. SANDO K                            /00209301/ [Concomitant]
     Dosage: UNK
  84. SANDO K                            /00209301/ [Concomitant]
     Dosage: 1 DOSAGE FORM
     Route: 048
     Dates: start: 20170525, end: 20170529
  85. CEFTRIAXONE [Concomitant]
     Active Substance: CEFTRIAXONE
     Indication: Product contamination microbial
     Dosage: 2 GRAM, QD
     Route: 042
  86. CEFTRIAXONE [Concomitant]
     Active Substance: CEFTRIAXONE
     Dosage: UNK
  87. METRONIDAZOLE                      /00012502/ [Concomitant]
     Indication: Duodenal ulcer
     Dosage: UNK
     Route: 065
     Dates: start: 20200909, end: 20200914
  88. TEICOPLANIN [Concomitant]
     Active Substance: TEICOPLANIN
     Indication: Product contamination microbial
     Dosage: UNK
     Route: 042
     Dates: start: 20200502, end: 20200515
  89. TEICOPLANIN [Concomitant]
     Active Substance: TEICOPLANIN
     Indication: Biliary sepsis
     Dosage: UNK
     Route: 042
     Dates: start: 20200925, end: 20200925
  90. TEICOPLANIN [Concomitant]
     Active Substance: TEICOPLANIN
     Dosage: UNK
     Route: 042
     Dates: start: 20201028, end: 20201104
  91. TINZAPARIN [Concomitant]
     Active Substance: TINZAPARIN
     Dosage: UNK
     Route: 058
     Dates: start: 20170713, end: 20190723
  92. TINZAPARIN [Concomitant]
     Active Substance: TINZAPARIN
     Dosage: 4500 INTERNATIONAL UNIT, QD
     Route: 058
     Dates: start: 20190916, end: 20191008
  93. CLOBETASOL PROPIONATE E [Concomitant]
     Indication: Product used for unknown indication
     Dosage: 0.05 PERCENT, BID
     Route: 061
     Dates: start: 20170210, end: 201708
  94. METRONIDAZOLE                      /00012502/ [Concomitant]
     Indication: Abdominal pain upper
     Dosage: 2 MILLIGRAM, QD
     Route: 042
     Dates: start: 20200925, end: 20200927
  95. METRONIDAZOLE                      /00012502/ [Concomitant]
     Dosage: 2 MILLIGRAM, QD
     Route: 042
     Dates: start: 20200630, end: 20200709
  96. METRONIDAZOLE [Concomitant]
     Active Substance: METRONIDAZOLE
     Indication: Cholecystitis acute
     Dosage: UNK
     Route: 042
     Dates: start: 20200630, end: 20200709
  97. METRONIDAZOLE [Concomitant]
     Active Substance: METRONIDAZOLE
     Indication: Abdominal pain upper
     Dosage: 400 MILLIGRAM, MONTHLY
     Route: 048
     Dates: start: 20201116, end: 202011
  98. METRONIDAZOLE [Concomitant]
     Active Substance: METRONIDAZOLE
     Indication: Duodenal ulcer
     Dosage: 2 MILLIGRAM, QD
     Route: 042
     Dates: start: 20200925, end: 20200927
  99. METRONIDAZOLE [Concomitant]
     Active Substance: METRONIDAZOLE
     Dosage: UNK
     Dates: start: 20200909, end: 20200914
  100. SORBINICATE [Concomitant]
     Active Substance: SORBINICATE
     Indication: Product used for unknown indication
     Dosage: 1 SPRAY
     Route: 060
     Dates: start: 20170526, end: 2017

REACTIONS (5)
  - Breast cancer [Fatal]
  - Disease progression [Fatal]
  - Abdominal pain [Recovered/Resolved]
  - Pyrexia [Not Recovered/Not Resolved]
  - Off label use [Unknown]

NARRATIVE: CASE EVENT DATE: 20200724
